FAERS Safety Report 15321239 (Version 2)
Quarter: 2018Q4

REPORT INFORMATION
  Report Type: Spontaneous
  Country: US (occurrence: US)
  Receive Date: 20180827
  Receipt Date: 20181228
  Transmission Date: 20190204
  Serious: No
  Sender: FDA-Public Use
  Company Number: US-SA-2018SA237337

PATIENT
  Age: 73 Year
  Sex: Female

DRUGS (2)
  1. LANTUS SOLOSTAR [Suspect]
     Active Substance: INSULIN GLARGINE
     Dosage: 10 U, AS NEEDED
     Route: 065
     Dates: start: 201801
  2. LANTUS SOLOSTAR [Suspect]
     Active Substance: INSULIN GLARGINE
     Indication: TYPE 2 DIABETES MELLITUS
     Dosage: 74 U, BID
     Route: 065

REACTIONS (5)
  - Blood glucose increased [Unknown]
  - Product use issue [Unknown]
  - Nephropathy [Unknown]
  - Back pain [Unknown]
  - Off label use [Unknown]
